FAERS Safety Report 13926975 (Version 3)
Quarter: 2018Q1

REPORT INFORMATION
  Report Type: Spontaneous
  Country: CH (occurrence: CH)
  Receive Date: 20170831
  Receipt Date: 20180205
  Transmission Date: 20180508
  Serious: Yes (Life-Threatening, Hospitalization)
  Sender: FDA-Public Use
  Company Number: CH-ALLERGAN-1748462US

PATIENT
  Age: 55 Year
  Sex: Female

DRUGS (10)
  1. ESCITALOPRAM OXALATE - BP [Suspect]
     Active Substance: ESCITALOPRAM OXALATE
     Indication: PRODUCT USED FOR UNKNOWN INDICATION
     Dosage: 5 MG, QD
     Route: 048
     Dates: start: 20160729
  2. QUETIAPIN ACTAVIS XR (QUETIAPINE FUMARATE) [Concomitant]
     Route: 048
     Dates: end: 20160715
  3. ABILIFY [Suspect]
     Active Substance: ARIPIPRAZOLE
     Indication: PSYCHOTIC DISORDER
  4. ESCITALOPRAM OXALATE - BP [Suspect]
     Active Substance: ESCITALOPRAM OXALATE
     Dosage: UNK
  5. TEMESTA (LORAZEPAM) [Concomitant]
     Active Substance: LORAZEPAM
     Route: 048
  6. SANDOZ [Concomitant]
     Active Substance: UNSPECIFIED INGREDIENT
     Dosage: UNK UNK, QD
     Route: 048
     Dates: start: 20160729, end: 20160801
  7. ABILIFY [Suspect]
     Active Substance: ARIPIPRAZOLE
     Indication: AGGRESSION
     Route: 030
     Dates: start: 20160719
  8. AMLODIPIN (AMLODIPINE) [Concomitant]
     Route: 048
  9. ARIPIPRAZOLE. [Suspect]
     Active Substance: ARIPIPRAZOLE
     Indication: AGGRESSION
     Dosage: 15 MG, QD
     Route: 048
     Dates: start: 20160708, end: 20160720
  10. ARIPIPRAZOLE. [Suspect]
     Active Substance: ARIPIPRAZOLE
     Dosage: 5 MG, QD
     Route: 048
     Dates: start: 20170721, end: 20170801

REACTIONS (9)
  - Muscle rigidity [Recovered/Resolved]
  - Tremor [Recovered/Resolved]
  - Mutism [Recovered/Resolved]
  - Serotonin syndrome [Recovered/Resolved]
  - Hyperreflexia [Recovered/Resolved]
  - Dysphagia [Recovered/Resolved]
  - Blood creatine phosphokinase increased [Recovered/Resolved]
  - Neuroleptic malignant syndrome [Recovered/Resolved]
  - Consciousness fluctuating [Unknown]

NARRATIVE: CASE EVENT DATE: 20160721
